FAERS Safety Report 8117068-1 (Version None)
Quarter: 2011Q4

REPORT INFORMATION
  Report Type: 
  Country: None (occurrence: None)
  Receive Date: 20111227
  Receipt Date: 20110301
  Transmission Date: 20120403
  Serious: Yes (Other)
  Sender: FDA-Public Use
  Company Number: PHHY2011US16998

PATIENT
  Sex: Female

DRUGS (3)
  1. CHEMOTHERAPEUTICS NOS (NO INGREDIENTS/SUBSTANCES) [Concomitant]
  2. FEMARA [Suspect]
     Dosage: 2.5 MG, QD
  3. ARIMIDEX [Suspect]

REACTIONS (4)
  - NEOPLASM RECURRENCE [None]
  - ALOPECIA [None]
  - NAUSEA [None]
  - ARTHRALGIA [None]
